FAERS Safety Report 7533286-5 (Version None)
Quarter: 2011Q2

REPORT INFORMATION
  Report Type: 
  Country: None (occurrence: None)
  Receive Date: 20110608
  Receipt Date: 20040526
  Transmission Date: 20111010
  Serious: Yes (Death, Other)
  Sender: FDA-Public Use
  Company Number: PHFR2004GB00748

PATIENT
  Sex: Male

DRUGS (11)
  1. DOCUSATE SODIUM [Concomitant]
     Indication: CONSTIPATION
     Dosage: 100 MG, BID
     Route: 048
     Dates: start: 20040124
  2. MORPHINE SULFATE [Concomitant]
     Indication: METASTASES TO SPINE
     Dosage: 10MG/5ML/1.25ML/ PRN
     Route: 048
     Dates: start: 20040124
  3. AMOXICILLIN [Concomitant]
     Indication: LOWER RESPIRATORY TRACT INFECTION
     Dosage: 250 MG/5ML, TDS
     Route: 048
     Dates: start: 20040325
  4. CLONAZEPAM [Concomitant]
     Indication: PSYCHOTIC DISORDER
     Dosage: 500 UG/NOCTE
     Route: 048
  5. OMEPRAZOLE [Concomitant]
     Indication: PROPHYLAXIS
     Dosage: 20 MG, QD/MANE
     Route: 048
  6. ITRACONAZOLE [Concomitant]
     Indication: ORAL CANDIDIASIS
     Dosage: 100 MG, QD
     Route: 048
     Dates: start: 20040124
  7. DICLOFENAC SODIUM [Concomitant]
     Indication: METASTASES TO SPINE
     Dosage: 50 MG, TID
     Route: 048
     Dates: start: 20040124
  8. CLOZAPINE [Suspect]
     Indication: SCHIZOPHRENIA
     Route: 048
     Dates: start: 20030723
  9. DEXAMETHASONE [Concomitant]
     Indication: SPINAL CORD DISORDER
     Dosage: 2 MG, BID
     Route: 042
     Dates: start: 20040124
  10. METFORMIN HCL [Concomitant]
     Indication: TYPE 2 DIABETES MELLITUS
     Dosage: 500 MG, BID
     Route: 048
     Dates: start: 20040228
  11. ZOPICLONE [Concomitant]
     Indication: SLEEP DISORDER
     Dosage: 7.5 MG, QD/MANE
     Route: 048
     Dates: start: 20030401

REACTIONS (4)
  - TYPE 2 DIABETES MELLITUS [None]
  - BLOOD GLUCOSE INCREASED [None]
  - METASTASES TO SPINE [None]
  - NEOPLASM MALIGNANT [None]
